FAERS Safety Report 7884156-4 (Version None)
Quarter: 2011Q4

REPORT INFORMATION
  Report Type: 
  Country: None (occurrence: None)
  Receive Date: 20111102
  Receipt Date: 20111031
  Transmission Date: 20120403
  Serious: Yes (Death)
  Sender: FDA-Public Use
  Company Number: US-GLAXOSMITHKLINE-A0951573A

PATIENT
  Age: 61 Year
  Sex: Male

DRUGS (15)
  1. SYNTHROID [Concomitant]
  2. WARFARIN SODIUM [Concomitant]
  3. CARVEDILOL [Concomitant]
  4. SLOW FE [Concomitant]
  5. METFORMIN HCL [Concomitant]
  6. NEXIUM [Concomitant]
  7. TESSALON [Concomitant]
  8. VOTRIENT [Suspect]
     Indication: RENAL CANCER
     Dosage: 400MG TWICE PER DAY
     Route: 048
     Dates: end: 20111023
  9. PROMETHAZINE [Concomitant]
  10. GLIPIZIDE [Concomitant]
  11. LIPITOR [Concomitant]
  12. GEMFIBROZIL [Concomitant]
  13. TUSSIONEX [Concomitant]
  14. CENTRUM SILVER [Concomitant]
  15. LOVAZA [Concomitant]

REACTIONS (1)
  - DEATH [None]
